FAERS Safety Report 5589820-8 (Version None)
Quarter: 2008Q1

REPORT INFORMATION
  Report Type: 
  Country: None (occurrence: None)
  Receive Date: 20080110
  Receipt Date: 20080110
  Transmission Date: 20080703
  Serious: No
  Sender: FDA-Public Use
  Company Number: None

PATIENT
  Sex: Female
  Weight: 76.2043 kg

DRUGS (1)
  1. NASACORT AQ [Suspect]
     Indication: MULTIPLE ALLERGIES
     Dosage: TWO SPRAYS  ONCE A DAY  NASAL
     Route: 045

REACTIONS (3)
  - INITIAL INSOMNIA [None]
  - INSOMNIA [None]
  - MUSCLE TWITCHING [None]
